FAERS Safety Report 8214425-X (Version None)
Quarter: 2012Q1

REPORT INFORMATION
  Report Type: 
  Country: None (occurrence: None)
  Receive Date: 20120316
  Receipt Date: 20120312
  Transmission Date: 20120608
  Serious: No
  Sender: FDA-Public Use
  Company Number: US-PFIZER INC-2012066303

PATIENT
  Sex: Female

DRUGS (1)
  1. GENOTROPIN [Suspect]
     Indication: FAILURE TO THRIVE
     Dosage: 4 MG, 1X/DAY
     Route: 058
     Dates: start: 20110302

REACTIONS (1)
  - MENSTRUATION IRREGULAR [None]
